FAERS Safety Report 10050313 (Version 1)
Quarter: 2014Q1

REPORT INFORMATION
  Report Type: Spontaneous
  Country: US (occurrence: None)
  Receive Date: 20140331
  Receipt Date: 20140331
  Transmission Date: 20141002
  Serious: Yes (Other)
  Sender: FDA-Public Use
  Company Number: None

PATIENT
  Age: 42 Year
  Sex: Female
  Weight: 70.31 kg

DRUGS (1)
  1. ABREVA, 2 GM, AVANIR PHARMACEUTICALS [Suspect]
     Indication: ORAL HERPES
     Dates: start: 20140216, end: 20140218

REACTIONS (2)
  - Lip swelling [None]
  - Lip discolouration [None]
